FAERS Safety Report 10633556 (Version 1)
Quarter: 2014Q4

REPORT INFORMATION
  Report Type: Spontaneous
  Country: US (occurrence: US)
  Receive Date: 20141205
  Receipt Date: 20141205
  Transmission Date: 20150529
  Serious: No
  Sender: FDA-Public Use
  Company Number: US-ABBVIE-14P-163-1208899-00

PATIENT
  Age: 13 Year
  Sex: Female

DRUGS (3)
  1. OMNICEF [Suspect]
     Active Substance: CEFDINIR
     Indication: PRODUCT USED FOR UNKNOWN INDICATION
  2. UNSPECIFIED EAR DROPS [Concomitant]
     Indication: PRODUCT USED FOR UNKNOWN INDICATION
  3. INCRELEX [Concomitant]
     Active Substance: MECASERMIN
     Indication: PRODUCT USED FOR UNKNOWN INDICATION

REACTIONS (2)
  - Erythema multiforme [Unknown]
  - Arthralgia [Unknown]

NARRATIVE: CASE EVENT DATE: 201207
